FAERS Safety Report 7708900-1 (Version None)
Quarter: 2011Q3

REPORT INFORMATION
  Report Type: 
  Country: None (occurrence: None)
  Receive Date: 20110825
  Receipt Date: 20110824
  Transmission Date: 20111222
  Serious: Yes (Other)
  Sender: FDA-Public Use
  Company Number: IT-SANOFI-AVENTIS-2011SA054140

PATIENT
  Age: 62 Year
  Sex: Male

DRUGS (2)
  1. ELOXATIN [Suspect]
     Route: 042
     Dates: start: 20110718, end: 20110718
  2. ELOXATIN [Suspect]
     Route: 042
     Dates: start: 20110823, end: 20110823

REACTIONS (3)
  - ERYTHEMA [None]
  - ANGINA PECTORIS [None]
  - PAIN [None]
